FAERS Safety Report 8095084-6 (Version None)
Quarter: 2012Q1

REPORT INFORMATION
  Report Type: 
  Country: None (occurrence: None)
  Receive Date: 20120131
  Receipt Date: 20120120
  Transmission Date: 20120608
  Serious: Yes (Life-Threatening, Hospitalization)
  Sender: FDA-Public Use
  Company Number: US-BAYER-2012-008698

PATIENT
  Age: 18 Year

DRUGS (60)
  1. ARMODAFINIL [Concomitant]
     Dosage: 400 MG, DAILY
     Route: 048
     Dates: start: 20090311
  2. VANCOMYCIN [Concomitant]
     Indication: MUCOSAL INFLAMMATION
     Dosage: UNK
     Dates: start: 20090311, end: 20090313
  3. VANCOMYCIN [Concomitant]
     Dosage: 1000 MG, BID
     Route: 042
     Dates: start: 20090520
  4. ZOSYN [Concomitant]
     Indication: MUCOSAL INFLAMMATION
     Dosage: 3 G, QID
     Route: 042
     Dates: start: 20090311, end: 20090317
  5. DEXTROMETHORPHAN HYDROBROMIDE [Concomitant]
     Indication: COUGH
     Dosage: 30 MG,  EVERY 6 HOURS AS PRN
     Route: 048
     Dates: start: 20090317
  6. LANTUS [Concomitant]
     Indication: DIABETES MELLITUS
     Dosage: 20 UNITS AT NIGHT
     Route: 058
     Dates: start: 20090317
  7. FOSPHENYTOIN [Concomitant]
     Dosage: UNK
     Dates: start: 20090320
  8. PROPOFOL [Concomitant]
     Dosage: 50 MG, ONCE
     Route: 042
     Dates: start: 20090320
  9. HUMALOG [Concomitant]
     Dosage: SLIDING SCALE
     Route: 058
     Dates: start: 20090322
  10. VANCOMYCIN/HEPARIN FLUSH [Concomitant]
     Dosage: 2 ML, EVERY 6 HOURS AS  PRN
     Route: 042
     Dates: start: 20090324
  11. BLEOMYCIN SULFATE [Concomitant]
     Indication: CHEMOTHERAPY
     Dosage: 7.2 UNITS
     Route: 042
     Dates: start: 20090330
  12. DOXORUBICIN HCL [Concomitant]
     Indication: CHEMOTHERAPY
     Dosage: 44 MG, UNK
     Route: 042
     Dates: start: 20090330
  13. MESNA [Concomitant]
     Indication: CHEMOTHERAPY
     Dosage: UNK
     Dates: start: 20090330
  14. CLOTRIMAZOLE [Concomitant]
     Dosage: UNK UNK, PRN
     Route: 061
     Dates: start: 20090503
  15. FENTANYL CITRATE [Concomitant]
     Dosage: UNK
     Dates: start: 20090608
  16. SULFAMETHOXAZOLE AND TRIMETHOPRIM [Concomitant]
     Dosage: 400MG-80MG, 1.5 TABLET
     Route: 048
     Dates: start: 20090323
  17. HEM/ONC MOUTHWASH [Concomitant]
     Indication: MUCOSAL INFLAMMATION
     Dosage: UNK UNK, SWISH AND SPIT QID
     Route: 048
     Dates: start: 20090317, end: 20090324
  18. LIDOCAINE/PRILOCAINE [LIDOCAINE,PRILOCAINE] [Concomitant]
     Dosage: 2.5%-2.5% APPLY 1-3 HOURS BEFORE PROCEDURE
     Dates: start: 20090330
  19. NEULASTA [Concomitant]
     Dosage: 6 MG, UNK
     Route: 058
     Dates: start: 20090403
  20. MYADEC [Concomitant]
     Dosage: 1 TABLET IN MORNING
     Route: 048
     Dates: start: 20090502
  21. GENTAMICIN [Concomitant]
     Dosage: 150 MG, BID
     Dates: start: 20090520
  22. NYSTATIN [Concomitant]
     Dosage: 4 ML, QID DAILY
     Route: 048
     Dates: start: 20090311
  23. PREDNISONE TAB [Concomitant]
     Dosage: 5 MG, DAILY
     Route: 048
     Dates: start: 20090317
  24. ATIVAN [Concomitant]
     Dosage: 1.3 MG, EVERY 6 HOURS AS PRN
     Route: 042
     Dates: start: 20090320
  25. AZACTAM [Concomitant]
     Dosage: 2000 MG, TID
     Route: 042
     Dates: start: 20090320
  26. BACTRIM [Concomitant]
     Dosage: 1 1/2 TABLET ON MONDAY, TUESDAY, WEDNESDAY
     Route: 048
     Dates: start: 20090311, end: 20090324
  27. ACETAMINOPHEN [Concomitant]
     Dosage: 650 MG, EVERY 6 HOURS AS PRN
     Route: 048
     Dates: start: 20090330
  28. MULTI-VITAMIN [Concomitant]
     Dosage: 1 TABLET DAILY
     Route: 048
     Dates: start: 20090503
  29. SOLU-CORTEF [Concomitant]
     Dosage: UNK
     Dates: start: 20090608
  30. LORATADINE [Concomitant]
     Dosage: 10 MG, DAILY
     Route: 048
     Dates: start: 20090311, end: 20090317
  31. OXYCODONE HCL [Concomitant]
     Indication: PAIN
     Dosage: 5 MG, EVERY 4 HOURS AS PRN
     Route: 048
     Dates: start: 20090317
  32. NOVOLOG [Concomitant]
     Indication: DIABETES MELLITUS
     Dosage: 1 UNIT EVERY 10 GRAMS OF CARDS, BLOOD GLUCOSE 50 GREATER THAN 150 AFTER MEALS
     Route: 058
     Dates: start: 20090317, end: 20090324
  33. ACETAMINOPHEN [Concomitant]
     Dosage: 500 MG, EVERY 4 HOURS AS PRN
     Route: 048
     Dates: start: 20090520
  34. MIDAZOLAM [Concomitant]
     Dosage: UNK
     Dates: start: 20090608
  35. NYSTATIN [Concomitant]
     Dosage: 30 G, TID
     Dates: start: 20090320
  36. PENICILLIN VK [Concomitant]
     Dosage: 150 MG, BID
     Route: 048
     Dates: start: 20090317
  37. ENALAPRIL [Concomitant]
     Dosage: 10 MG, DAILY
     Route: 048
     Dates: start: 20090323
  38. DOCUSATE SODIUM [Concomitant]
     Dosage: 100 MG, BID
     Route: 048
     Dates: start: 20090317, end: 20090324
  39. TRAZODONE HCL [Concomitant]
     Dosage: 25 MG, AT NIGHT
     Route: 048
     Dates: start: 20090324
  40. CYTOXAN [Concomitant]
     Indication: CHEMOTHERAPY
     Dosage: 1160 MG, UNK
     Route: 042
     Dates: start: 20090330
  41. AQUAPHOR OINTMENT [Concomitant]
     Dosage: UNK UNK, TID
     Route: 061
     Dates: start: 20090403
  42. ZINC OXIDE [Concomitant]
     Dosage: UNK UNK, PRN
     Route: 061
     Dates: start: 20090503
  43. KETOROLAC TROMETHAMINE [Concomitant]
     Dosage: UNK
     Dates: start: 20090608
  44. YAZ [Suspect]
     Dosage: UNK
     Dates: end: 20090601
  45. ONDANSETRON [Concomitant]
     Indication: NAUSEA
     Dosage: 8 MG, EVERY 4-6 HOURS PRN
     Route: 048
     Dates: start: 20090317
  46. PHENYTOIN [Concomitant]
     Dosage: 95 MG, TID
     Route: 048
     Dates: start: 20090322
  47. ASPIRIN [Concomitant]
     Dosage: 81 MG, DAILY
     Route: 048
     Dates: start: 20090323
  48. VINCRISTINE [Concomitant]
     Indication: CHEMOTHERAPY
     Dosage: 2 MG, UNK
     Route: 042
     Dates: start: 20090330
  49. SYNERA [Concomitant]
     Dosage: 70 MG, PRN
     Route: 061
     Dates: start: 20090330
  50. MIRALAX [Concomitant]
     Indication: CONSTIPATION
     Dosage: ONE SCOOP IN 8 OUNCES WATER AS NEEDED DAILY
     Route: 048
     Dates: start: 20090403
  51. PIPERACILLIN AND TAZOBACTAM [Concomitant]
     Dosage: 400 MG, QID
     Route: 042
     Dates: start: 20090503
  52. BUPIVACAIN HYDROCHLORID W/EPINEPHRIN [Concomitant]
     Dosage: UNK
     Dates: start: 20090608
  53. YASMIN [Suspect]
     Dosage: UNK
     Dates: end: 20090601
  54. LEVAQUIN [Concomitant]
     Dosage: 500 MG, DAILY
     Route: 048
  55. KEPPRA [Concomitant]
     Dosage: 500 MG, BID
     Dates: start: 20090323
  56. RANITIDINE [Concomitant]
     Dosage: 150 MG, BID
     Route: 048
     Dates: start: 20090311, end: 20090324
  57. CEFUROXIME [Concomitant]
     Dosage: 250 MG, BID
     Route: 048
     Dates: start: 20090317
  58. CEREBYX [Concomitant]
     Dosage: 95 MG, TID
     Route: 042
     Dates: start: 20090320
  59. FUROSEMIDE [Concomitant]
     Dosage: 20 MG, DAILY
     Route: 042
     Dates: start: 20090514
  60. ZEMURON [Concomitant]
     Dosage: UNK
     Dates: start: 20090608

REACTIONS (1)
  - PULMONARY EMBOLISM [None]
